FAERS Safety Report 5698795-2 (Version None)
Quarter: 2008Q2

REPORT INFORMATION
  Report Type: 
  Country: None (occurrence: None)
  Receive Date: 20080404
  Receipt Date: 20080327
  Transmission Date: 20081010
  Serious: Yes (Death)
  Sender: FDA-Public Use
  Company Number: FABR-12319

PATIENT
  Age: 48 Year
  Sex: Male
  Weight: 67 kg

DRUGS (8)
  1. FABRAZYME [Suspect]
     Indication: FABRY'S DISEASE
     Dosage: 65 MG, Q2W, INTRAVENOUS
     Route: 042
     Dates: start: 20070313, end: 20071204
  2. CANDESARTAN CILEXETIL (CANDESARTAN CILEXETIL) [Concomitant]
  3. FAMOTIDINE [Concomitant]
  4. PREDNISOLONE ACETATE [Concomitant]
  5. CHLORPHENIRAMINE TAB [Concomitant]
  6. ACETAMINOPHEN [Concomitant]
  7. ASPIRIN (SALICYLAMIDE) [Concomitant]
  8. CARVEDILOL [Concomitant]

REACTIONS (1)
  - SUDDEN DEATH [None]
